FAERS Safety Report 5234358-0 (Version None)
Quarter: 2007Q1

REPORT INFORMATION
  Report Type: 
  Country: None (occurrence: None)
  Receive Date: 20070209
  Receipt Date: 20070131
  Transmission Date: 20070707
  Serious: Yes (Other)
  Sender: FDA-Public Use
  Company Number: US-ROCHE-354332

PATIENT
  Age: 57 Year
  Sex: Male

DRUGS (2)
  1. FUZEON [Suspect]
     Indication: HIV INFECTION
     Route: 058
     Dates: start: 20030701
  2. PROTEASE INHIBITOR [Suspect]
     Route: 065

REACTIONS (8)
  - ANAEMIA [None]
  - BLOOD CHOLESTEROL ABNORMAL [None]
  - INJECTION SITE REACTION [None]
  - LIPODYSTROPHY ACQUIRED [None]
  - NECROSIS [None]
  - OBSTRUCTION [None]
  - THROMBOSIS [None]
  - URTICARIA [None]
